FAERS Safety Report 20554439 (Version 1)
Quarter: 2022Q1

REPORT INFORMATION
  Report Type: Report from Study
  Country: US (occurrence: None)
  Receive Date: 20220304
  Receipt Date: 20220304
  Transmission Date: 20220423
  Serious: Yes (Death)
  Sender: FDA-Public Use
  Company Number: 2022A097286

PATIENT
  Age: 57 Year
  Sex: Male

DRUGS (1)
  1. TAGRISSO [Suspect]
     Active Substance: OSIMERTINIB
     Indication: Bronchial carcinoma
     Route: 048
     Dates: start: 20201016, end: 20220228

REACTIONS (1)
  - Death [Fatal]

NARRATIVE: CASE EVENT DATE: 20220228
